FAERS Safety Report 5504194-6 (Version None)
Quarter: 2007Q4

REPORT INFORMATION
  Report Type: 
  Country: None (occurrence: None)
  Receive Date: 20071101
  Receipt Date: 20071029
  Transmission Date: 20080405
  Serious: Yes (Other)
  Sender: FDA-Public Use
  Company Number: B0489550A

PATIENT
  Age: 19 Year
  Sex: Female

DRUGS (1)
  1. VALTREX [Suspect]
     Indication: HERPES VIRUS INFECTION
     Route: 048
     Dates: start: 20070831, end: 20070915

REACTIONS (2)
  - ABORTION INDUCED [None]
  - DRUG EXPOSURE BEFORE PREGNANCY [None]
